FAERS Safety Report 19486475 (Version 1)
Quarter: 2021Q3

REPORT INFORMATION
  Report Type: Spontaneous
  Country: US (occurrence: US)
  Receive Date: 20210701
  Receipt Date: 20210701
  Transmission Date: 20211014
  Serious: Yes (Hospitalization)
  Sender: FDA-Public Use
  Company Number: None

PATIENT
  Sex: Female

DRUGS (23)
  1. AMBRISENTAN 5MG TAB [Suspect]
     Active Substance: AMBRISENTAN
     Indication: PULMONARY ARTERIAL HYPERTENSION
     Route: 048
     Dates: start: 20210512
  2. BACTRIM DS [Concomitant]
     Active Substance: SULFAMETHOXAZOLE\TRIMETHOPRIM
  3. SINGULAIR CHW [Concomitant]
  4. VALTREX [Concomitant]
     Active Substance: VALACYCLOVIR HYDROCHLORIDE
  5. VITAMIN B50 [Concomitant]
  6. DOXYCYCL HYC [Concomitant]
     Active Substance: DOXYCYCLINE HYCLATE
  7. TESTOSTERONE CYPIONAT [Concomitant]
  8. VITAMIN D [Concomitant]
     Active Substance: VITAMIN D NOS
  9. VOLTAREN [Concomitant]
     Active Substance: DICLOFENAC SODIUM
  10. IPRATROPIUM/SOL ALBUTER [Concomitant]
  11. MIRENA (OTHER PHARMACY) [Concomitant]
  12. TRETINON CRE [Concomitant]
  13. DESONIDE. [Concomitant]
     Active Substance: DESONIDE
  14. MINOCYCLINE [Concomitant]
     Active Substance: MINOCYCLINE HYDROCHLORIDE
  15. PROAIR RESPI [Concomitant]
  16. CLINDAMYCIN OIN [Concomitant]
  17. LEXAPRO [Concomitant]
     Active Substance: ESCITALOPRAM OXALATE
  18. LIDODERM [Concomitant]
     Active Substance: LIDOCAINE
  19. OMEPRAZOLE. [Concomitant]
     Active Substance: OMEPRAZOLE
  20. FERROUS FUM [Concomitant]
  21. NAPROXEN. [Concomitant]
     Active Substance: NAPROXEN
  22. CALCIUM [Concomitant]
     Active Substance: CALCIUM
  23. DULERA [Concomitant]
     Active Substance: FORMOTEROL FUMARATE DIHYDRATE\MOMETASONE FUROATE

REACTIONS (1)
  - Tibia fracture [None]
